FAERS Safety Report 8900199 (Version 2)
Quarter: 2014Q1

REPORT INFORMATION
  Report Type: Report from Study
  Country: US (occurrence: US)
  Receive Date: 20121109
  Receipt Date: 20140213
  Transmission Date: 20141002
  Serious: Yes (Hospitalization)
  Sender: FDA-Public Use
  Company Number: US-ALEXION PHARMACEUTICALS INC.-A201202082

PATIENT
  Age: 24 Year
  Sex: Male

DRUGS (1)
  1. SOLIRIS [Suspect]
     Indication: HAEMOLYTIC URAEMIC SYNDROME
     Dosage: UNK
     Route: 042
     Dates: start: 20120208

REACTIONS (10)
  - Pyrexia [Unknown]
  - Dizziness [Unknown]
  - Asthenia [Unknown]
  - Fatigue [Unknown]
  - Monocyte percentage increased [Unknown]
  - Blood bilirubin increased [Unknown]
  - Haematocrit decreased [Unknown]
  - Fatigue [Unknown]
  - Anxiety [Unknown]
  - Activities of daily living impaired [Unknown]
